FAERS Safety Report 23604889 (Version 1)
Quarter: 2024Q1

REPORT INFORMATION
  Report Type: Report from Study
  Country: JP (occurrence: JP)
  Receive Date: 20240307
  Receipt Date: 20240307
  Transmission Date: 20240410
  Serious: Yes (Other)
  Sender: FDA-Public Use
  Company Number: JP-SUN PHARMACEUTICAL INDUSTRIES LTD-2024RR-434728

PATIENT
  Age: 78 Year
  Sex: Female
  Weight: 49.8 kg

DRUGS (2)
  1. PEMETREXED [Suspect]
     Active Substance: PEMETREXED
     Indication: Non-small cell lung cancer
     Dosage: UNK
     Route: 065
  2. CARBOPLATIN [Suspect]
     Active Substance: CARBOPLATIN
     Indication: Non-small cell lung cancer
     Dosage: UNK
     Route: 065

REACTIONS (2)
  - Renal disorder [Unknown]
  - Disease progression [Unknown]
